FAERS Safety Report 23344896 (Version 1)
Quarter: 2023Q4

REPORT INFORMATION
  Report Type: Spontaneous
  Country: GB (occurrence: GB)
  Receive Date: 20231228
  Receipt Date: 20231228
  Transmission Date: 20240110
  Serious: Yes (Hospitalization, Disabling, Other)
  Sender: FDA-Public Use
  Company Number: None

PATIENT
  Age: 19 Year
  Weight: 59 kg

DRUGS (5)
  1. BETAMETHASONE [Suspect]
     Active Substance: BETAMETHASONE\BETAMETHASONE DIPROPIONATE
     Indication: Phimosis
     Dosage: APPLIED TOPICALLY EVERY SO OFTEN TO VARYING AREAS OF THE BODY
     Route: 061
     Dates: start: 20130101, end: 20221125
  2. ASHBOURNE PHARMS BECLOMETHASONE AQUEOUS [Concomitant]
     Indication: Rhinitis
     Dates: start: 20120102, end: 20150524
  3. BECLOMETHASONE [Concomitant]
     Active Substance: BECLOMETHASONE
     Indication: Asthma
     Dates: start: 20100101, end: 20200706
  4. HYDROCORTISONE [Suspect]
     Active Substance: HYDROCORTISONE
     Indication: Eczema
     Dosage: USED TOPICALLY EVERY DAY FOR 2 WEEKS. WAS TOLD BY GP TO CONTINUE USING
     Route: 061
     Dates: start: 20210115, end: 20221125
  5. ALBUTEROL [Concomitant]
     Active Substance: ALBUTEROL
     Indication: Asthma
     Dates: start: 20100101, end: 20200706

REACTIONS (16)
  - Lymph node pain [Not Recovered/Not Resolved]
  - Suicidal ideation [Not Recovered/Not Resolved]
  - Genital swelling [Not Recovered/Not Resolved]
  - Skin exfoliation [Not Recovered/Not Resolved]
  - Oedema [Not Recovered/Not Resolved]
  - Erythema [Not Recovered/Not Resolved]
  - Dermatitis exfoliative generalised [Not Recovered/Not Resolved]
  - Inflammation [Not Recovered/Not Resolved]
  - Insomnia [Not Recovered/Not Resolved]
  - Immobile [Recovered/Resolved]
  - Skin weeping [Not Recovered/Not Resolved]
  - Body temperature fluctuation [Not Recovered/Not Resolved]
  - Fatigue [Not Recovered/Not Resolved]
  - Emotional distress [Not Recovered/Not Resolved]
  - Medication error [Unknown]
  - Alopecia [Not Recovered/Not Resolved]

NARRATIVE: CASE EVENT DATE: 20220624
